FAERS Safety Report 6222018-9 (Version None)
Quarter: 2009Q2

REPORT INFORMATION
  Report Type: 
  Country: None (occurrence: None)
  Receive Date: 20090608
  Receipt Date: 20090608
  Transmission Date: 20091009
  Serious: Yes (Death)
  Sender: FDA-Public Use
  Company Number: None

PATIENT
  Age: 90 Year
  Sex: Female
  Weight: 44.4525 kg

DRUGS (7)
  1. SEROQUEL [Suspect]
     Indication: AGITATION
     Dosage: 1/2 TEASPOONFUL ONCE PER NIGHT PO
     Route: 048
     Dates: start: 20090404, end: 20090519
  2. SEROQUEL [Suspect]
     Indication: ANXIETY
     Dosage: 1/2 TEASPOONFUL ONCE PER NIGHT PO
     Route: 048
     Dates: start: 20090404, end: 20090519
  3. SEROQUEL [Suspect]
     Indication: DEMENTIA
     Dosage: 1/2 TEASPOONFUL ONCE PER NIGHT PO
     Route: 048
     Dates: start: 20090404, end: 20090519
  4. CARBIDOPA + LEVODOPA [Concomitant]
  5. MIRAPEX [Concomitant]
  6. COLACE [Concomitant]
  7. SENNA [Concomitant]

REACTIONS (2)
  - BREAST CANCER RECURRENT [None]
  - CEREBROVASCULAR ACCIDENT [None]
